FAERS Safety Report 5843623-5 (Version None)
Quarter: 2008Q3

REPORT INFORMATION
  Report Type: 
  Country: None (occurrence: None)
  Receive Date: 20080813
  Receipt Date: 20080709
  Transmission Date: 20090109
  Serious: No
  Sender: FDA-Public Use
  Company Number: A0736724A

PATIENT
  Age: 48 Year
  Sex: Male

DRUGS (4)
  1. COREG CR [Suspect]
     Indication: HYPERTENSION
     Dosage: 80MG PER DAY
     Route: 048
     Dates: start: 20080101
  2. SERZONE [Concomitant]
  3. BACTRIM [Concomitant]
  4. PRILOSEC [Concomitant]

REACTIONS (4)
  - BLOOD PRESSURE INCREASED [None]
  - INSOMNIA [None]
  - IRRITABILITY [None]
  - PSYCHOMOTOR HYPERACTIVITY [None]
